FAERS Safety Report 13375887 (Version 1)
Quarter: 2017Q1

REPORT INFORMATION
  Report Type: Spontaneous
  Country: GB (occurrence: GB)
  Receive Date: 20170328
  Receipt Date: 20170328
  Transmission Date: 20170429
  Serious: Yes (Life-Threatening, Hospitalization, Other)
  Sender: FDA-Public Use
  Company Number: GB-ACCORD-049465

PATIENT
  Age: 46 Year
  Sex: Male
  Weight: 63.4 kg

DRUGS (4)
  1. VENLAFAXINE [Suspect]
     Active Substance: VENLAFAXINE HYDROCHLORIDE
     Indication: DEPRESSION
     Dosage: EACH MORNING?ALSO RECEIVED ORAL 37.5 MG TWICE DAILY UP TO 22-FEB-2017
     Route: 048
     Dates: end: 20170223
  2. QUETIAPINE. [Suspect]
     Active Substance: QUETIAPINE
     Indication: DEPRESSION
     Dosage: AT NIGHT
     Route: 048
     Dates: end: 20170223
  3. NIQUITIN [Concomitant]
     Active Substance: NICOTINE
  4. CITALOPRAM [Suspect]
     Active Substance: CITALOPRAM HYDROBROMIDE
     Indication: PRODUCT USED FOR UNKNOWN INDICATION

REACTIONS (7)
  - Condition aggravated [Unknown]
  - Pain in extremity [Unknown]
  - Myoclonic epilepsy [Recovering/Resolving]
  - Incontinence [Unknown]
  - Dyspnoea [Unknown]
  - Drug hypersensitivity [Unknown]
  - Hypothermia [Unknown]

NARRATIVE: CASE EVENT DATE: 20170216
